APPROVED DRUG PRODUCT: LIDOCAINE HYDROCHLORIDE
Active Ingredient: LIDOCAINE HYDROCHLORIDE
Strength: 2%
Dosage Form/Route: JELLY;TOPICAL
Application: A040433 | Product #001 | TE Code: AT
Applicant: SENTISS AG
Approved: Feb 12, 2003 | RLD: No | RS: No | Type: RX